FAERS Safety Report 9028164 (Version 1)
Quarter: 2013Q1

REPORT INFORMATION
  Report Type: Spontaneous
  Country: US (occurrence: None)
  Receive Date: 20130115
  Receipt Date: 20130115
  Transmission Date: 20140127
  Serious: Yes (Other)
  Sender: FDA-Public Use
  Company Number: None

PATIENT
  Age: 74 Year
  Sex: Female
  Weight: 72.58 kg

DRUGS (2)
  1. MUCINEX DM [Suspect]
     Route: 048
     Dates: start: 20130108, end: 20130109
  2. GUAIFEN/CODEIN [Suspect]
     Dosage: 2 TSPS EVERY 6 HOURS 3/DAYS PO
     Route: 048
     Dates: start: 20130108, end: 20130109

REACTIONS (9)
  - Dizziness [None]
  - Dizziness [None]
  - Anxiety [None]
  - Feeling jittery [None]
  - Fear [None]
  - Feeling abnormal [None]
  - Drug dose omission [None]
  - Anxiety [None]
  - Panic reaction [None]
